FAERS Safety Report 8817783 (Version 2)
Quarter: 2012Q4

REPORT INFORMATION
  Report Type: 
  Country: DE (occurrence: DE)
  Receive Date: 20121001
  Receipt Date: 20121127
  Transmission Date: 20130627
  Serious: Yes (Hospitalization)
  Sender: FDA-Public Use
  Company Number: PHHO2012DE012540

PATIENT
  Age: 24 Year
  Sex: Male
  Weight: 75 kg

DRUGS (12)
  1. BLINDED AFINITOR [Suspect]
     Indication: TUBEROUS SCLEROSIS
     Dosage: Double-blinded
     Dates: start: 20090730
  2. BLINDED NO TREATMENT RECEIVED [Suspect]
     Indication: TUBEROUS SCLEROSIS
     Dosage: Double-blinded
     Dates: start: 20090730
  3. BLINDED PLACEBO [Suspect]
     Indication: TUBEROUS SCLEROSIS
     Dosage: Double-blinded
     Dates: start: 20090730
  4. KEPPRA [Suspect]
     Indication: EPILEPSY
     Dosage: 250 mg, UNK
     Dates: start: 2009
  5. KEPPRA [Suspect]
     Dosage: 375 mg, QD
     Route: 048
     Dates: start: 20111101, end: 20120828
  6. KEPPRA [Suspect]
     Dosage: 250 mg, BID
     Route: 048
     Dates: start: 20120808, end: 20120828
  7. KEPPRA [Suspect]
     Dosage: 500 mg, BID
     Route: 048
     Dates: start: 20120829, end: 20120918
  8. KEPPRA [Suspect]
     Dosage: 500 mg, UNK
     Route: 048
     Dates: start: 20120918
  9. OPTIPECT [Concomitant]
     Indication: COUGH
     Dosage: 15 drp, BID
     Route: 048
     Dates: start: 20111024, end: 20111025
  10. OPTIPECT [Concomitant]
     Dosage: 15 drp, QD
     Route: 048
     Dates: start: 20111029, end: 20120326
  11. GENTAMICIN [Concomitant]
     Indication: CONJUNCTIVITIS
     Dosage: 1 UNK, QD
     Route: 062
     Dates: start: 20120525
  12. MCP [Concomitant]
     Indication: NAUSEA
     Dosage: 30 drp, PRN
     Route: 048
     Dates: start: 20120804

REACTIONS (1)
  - Panic attack [Not Recovered/Not Resolved]
